FAERS Safety Report 5906215-5 (Version None)
Quarter: 2008Q4

REPORT INFORMATION
  Report Type: 
  Country: None (occurrence: None)
  Receive Date: 20081002
  Receipt Date: 20080926
  Transmission Date: 20090506
  Serious: Yes (Hospitalization)
  Sender: FDA-Public Use
  Company Number: PHHO2008US05399

PATIENT
  Sex: Male
  Weight: 96.6 kg

DRUGS (7)
  1. NEORAL [Suspect]
     Indication: LIVER TRANSPLANT
     Dosage: 350 MG, DAILY
     Route: 048
     Dates: start: 20071004
  2. NEORAL [Suspect]
     Dosage: 75 MG, BID
     Route: 048
     Dates: start: 20080414
  3. NEORAL [Suspect]
     Dosage: 50 MG, BID
     Route: 048
     Dates: start: 20080423
  4. METOPROLOL TARTRATE [Concomitant]
     Indication: HYPERTENSION
  5. LISINOPRIL [Concomitant]
  6. NORVASC [Concomitant]
     Indication: HYPERTENSION
  7. IMITREX [Concomitant]

REACTIONS (10)
  - BLOOD CREATININE INCREASED [None]
  - DIZZINESS [None]
  - FIBROSIS [None]
  - HEADACHE [None]
  - HEPATITIS C [None]
  - HYPERBILIRUBINAEMIA [None]
  - HYPERTENSION [None]
  - HYPERTENSIVE ENCEPHALOPATHY [None]
  - MALIGNANT HYPERTENSION [None]
  - NAUSEA [None]
